FAERS Safety Report 20767861 (Version 1)
Quarter: 2022Q2

REPORT INFORMATION
  Report Type: Spontaneous
  Country: GB (occurrence: GB)
  Receive Date: 20220429
  Receipt Date: 20220429
  Transmission Date: 20220721
  Serious: Yes (Disabling, Other)
  Sender: FDA-Public Use
  Company Number: GB-MHRA-MED-202204211202411740-IYZ6H

PATIENT
  Age: 22 Year
  Sex: Male
  Weight: 79 kg

DRUGS (2)
  1. FINASTERIDE [Suspect]
     Active Substance: FINASTERIDE
     Indication: Alopecia
     Dosage: 1 MG (ADDITIONAL INFO: ROUTE)
     Dates: start: 20210911, end: 20220101
  2. VITAMIN D3 [Concomitant]
     Active Substance: CHOLECALCIFEROL
     Indication: Adverse drug reaction
     Dosage: UNK (ADDITIONAL INFO: ROUTE)
     Dates: start: 20200101

REACTIONS (1)
  - Adverse drug reaction [Not Recovered/Not Resolved]

NARRATIVE: CASE EVENT DATE: 20211101
